FAERS Safety Report 7858407-6 (Version None)
Quarter: 2011Q4

REPORT INFORMATION
  Report Type: 
  Country: None (occurrence: None)
  Receive Date: 20111027
  Receipt Date: 20111017
  Transmission Date: 20120403
  Serious: Yes (Disabling, Other)
  Sender: FDA-Public Use
  Company Number: PHEH2011US03316

PATIENT
  Sex: Female
  Weight: 58.503 kg

DRUGS (1)
  1. RECLAST [Suspect]
     Indication: OSTEOPOROSIS
     Dosage: 5 MG, PER YEAR
     Route: 042
     Dates: start: 20110804

REACTIONS (29)
  - LOWER LIMB FRACTURE [None]
  - DEAFNESS [None]
  - HYPOAESTHESIA [None]
  - INFLUENZA LIKE ILLNESS [None]
  - FATIGUE [None]
  - FEELING ABNORMAL [None]
  - CHEST DISCOMFORT [None]
  - ASTHENIA [None]
  - COLD SWEAT [None]
  - ARTHRALGIA [None]
  - MALAISE [None]
  - ADMINISTRATION SITE REACTION [None]
  - DYSPEPSIA [None]
  - JOINT STIFFNESS [None]
  - DYSPNOEA [None]
  - THROMBOSIS [None]
  - ERYTHEMA [None]
  - BLOOD PRESSURE INCREASED [None]
  - VISION BLURRED [None]
  - HEADACHE [None]
  - EYE PAIN [None]
  - BACK PAIN [None]
  - HYPERHIDROSIS [None]
  - PAIN [None]
  - PALPITATIONS [None]
  - VOMITING [None]
  - LIVER FUNCTION TEST ABNORMAL [None]
  - DIZZINESS [None]
  - NAUSEA [None]
